FAERS Safety Report 8620427-1 (Version None)
Quarter: 2012Q3

REPORT INFORMATION
  Report Type: 
  Country: None (occurrence: None)
  Receive Date: 20120824
  Receipt Date: 20120815
  Transmission Date: 20120928
  Serious: Yes (Hospitalization)
  Sender: FDA-Public Use
  Company Number: US-ASTRAZENECA-2012SE57557

PATIENT
  Age: 17 Year
  Sex: Female
  Weight: 52.2 kg

DRUGS (2)
  1. SEROQUEL [Suspect]
     Indication: DEPRESSION
     Route: 048
     Dates: start: 20120301
  2. MINOCYCLINE HCL [Suspect]
     Indication: ACNE
     Route: 048
     Dates: start: 20100901

REACTIONS (2)
  - GENDER IDENTITY DISORDER [None]
  - INTENTIONAL SELF-INJURY [None]
